FAERS Safety Report 4437068-2 (Version None)
Quarter: 2004Q3

REPORT INFORMATION
  Report Type: 
  Country: None (occurrence: None)
  Receive Date: 20040830
  Receipt Date: 20040820
  Transmission Date: 20050211
  Serious: Yes (Other)
  Sender: FDA-Public Use
  Company Number: CN-GLAXOSMITHKLINE-B0343426A

PATIENT
  Age: 20 Year
  Sex: Male

DRUGS (3)
  1. HEPTODIN [Suspect]
     Indication: HEPATITIS
     Route: 048
  2. HEPTODIN [Suspect]
     Indication: PROPHYLAXIS
     Route: 048
  3. ADEFOVIR [Concomitant]

REACTIONS (2)
  - DRUG INEFFECTIVE [None]
  - HEPATITIS B VIRUS [None]
